FAERS Safety Report 21908496 (Version 1)
Quarter: 2023Q1

REPORT INFORMATION
  Report Type: Spontaneous
  Country: US (occurrence: None)
  Receive Date: 20230124
  Receipt Date: 20230124
  Transmission Date: 20230418
  Serious: No
  Sender: FDA-Public Use
  Company Number: None

PATIENT

DRUGS (3)
  1. ESOMEPRAZOLE [Suspect]
     Active Substance: ESOMEPRAZOLE
  2. OMEPRAZOLE [Suspect]
     Active Substance: OMEPRAZOLE
  3. IBUPROFEN [Concomitant]
     Active Substance: IBUPROFEN

REACTIONS (5)
  - Abdominal pain upper [None]
  - Diarrhoea [None]
  - Drug ineffective [None]
  - Eructation [None]
  - Disease recurrence [None]

NARRATIVE: CASE EVENT DATE: 20200115
